FAERS Safety Report 7385318-5 (Version None)
Quarter: 2011Q1

REPORT INFORMATION
  Report Type: 
  Country: None (occurrence: None)
  Receive Date: 20110330
  Receipt Date: 20100716
  Transmission Date: 20110831
  Serious: No
  Sender: FDA-Public Use
  Company Number: US-MYLANLABS-2010S1012891

PATIENT
  Age: 57 Year
  Sex: Female

DRUGS (14)
  1. EMSAM [Suspect]
     Route: 062
     Dates: start: 20100714, end: 20100715
  2. VALIUM [Concomitant]
  3. ZOCOR [Concomitant]
  4. ATIVAN [Concomitant]
  5. LORTAB [Concomitant]
     Indication: PAIN
  6. ATENOLOL [Concomitant]
     Indication: HEART RATE INCREASED
  7. MIRALAX [Concomitant]
  8. ASPIRIN [Concomitant]
  9. EMSAM [Suspect]
     Indication: DEPRESSION
     Route: 062
     Dates: start: 20100601, end: 20100601
  10. LOVENOX [Concomitant]
  11. XANAX [Concomitant]
  12. COLACE [Concomitant]
  13. AMBIEN [Concomitant]
  14. MULTIVITAMIN [Concomitant]

REACTIONS (3)
  - HYPERACUSIS [None]
  - DEPRESSION [None]
  - SUICIDAL IDEATION [None]
